FAERS Safety Report 13791386 (Version 3)
Quarter: 2017Q3

REPORT INFORMATION
  Report Type: Report from Study
  Country: PL (occurrence: PL)
  Receive Date: 20170725
  Receipt Date: 20170829
  Transmission Date: 20171127
  Serious: Yes (Hospitalization)
  Sender: FDA-Public Use
  Company Number: PL-AMGEN-POLCT2017037658

PATIENT
  Age: 78 Year
  Sex: Male
  Weight: 67 kg

DRUGS (27)
  1. DENOSUMAB [Suspect]
     Active Substance: DENOSUMAB
     Indication: PLASMA CELL MYELOMA
     Dosage: 120 MG, UNK
     Route: 065
     Dates: start: 20140425, end: 20161230
  2. FLUCOFAST [Concomitant]
     Dosage: 100 MG, UNK
     Route: 048
     Dates: start: 20140422, end: 20170522
  3. GABAPENTIN. [Concomitant]
     Active Substance: GABAPENTIN
     Dosage: 100 MG, UNK
     Route: 048
     Dates: start: 20140513
  4. AESCIN [Concomitant]
     Dosage: 2 UNK, UNK
     Route: 048
     Dates: start: 20140521, end: 20170522
  5. BISEPTOL [Concomitant]
     Active Substance: SULFAMETHOXAZOLE\TRIMETHOPRIM
     Dosage: 960 MG, UNK
     Route: 048
     Dates: start: 20140422, end: 20170522
  6. LACIDOFIL [Concomitant]
     Active Substance: LACTOBACILLUS ACIDOPHILUS\LACTOBACILLUS RHAMNOSUS
     Dosage: 1 UNK, UNK
     Route: 048
     Dates: start: 20140422
  7. KALIPOZ [Concomitant]
     Active Substance: POTASSIUM CHLORIDE
     Dosage: 1 UNK, UNK
     Route: 048
     Dates: start: 20141002
  8. VITAMIN B12 [Concomitant]
     Active Substance: CYANOCOBALAMIN
     Dosage: 1000 MUG, UNK
     Route: 030
     Dates: start: 20150129
  9. CONTROLOC [Concomitant]
     Active Substance: PANTOPRAZOLE SODIUM
     Dosage: 40 MG, UNK
     Route: 048
     Dates: start: 20141002
  10. ACIDUM FOLICUM [Concomitant]
     Active Substance: FOLIC ACID
     Dosage: 15 MG, UNK
     Route: 048
     Dates: start: 20141218
  11. MEGALIA [Concomitant]
     Dosage: 20 ML, UNK
     Route: 048
     Dates: start: 20140403
  12. SETRONON [Concomitant]
     Active Substance: ONDANSETRON HYDROCHLORIDE
     Dosage: 8 MG, UNK
     Route: 048
     Dates: start: 20140425, end: 20170522
  13. PREDUCTAL [Concomitant]
     Active Substance: TRIMETAZIDINE DIHYDROCHLORIDE
     Dosage: 35 MG, UNK
     Route: 048
     Dates: start: 20140521, end: 20170522
  14. SOBYCOR [Concomitant]
     Active Substance: BISOPROLOL FUMARATE
     Dosage: 2.5 MG, UNK
     Route: 048
     Dates: start: 20140521, end: 20170522
  15. HYDROCORTISON [Concomitant]
     Active Substance: HYDROCORTISONE
     Dosage: 20 MG, UNK
     Route: 048
     Dates: start: 20141230, end: 20170307
  16. OROCAL D3 [Concomitant]
     Active Substance: CALCIUM CARBONATE\CHOLECALCIFEROL
     Dosage: 1 (400 IU + 500 MG) UNK, UNK
     Route: 048
     Dates: start: 20140425
  17. TORVACARD [Concomitant]
     Active Substance: ATORVASTATIN CALCIUM
     Dosage: 20 MG, UNK
     Route: 048
     Dates: start: 20140521, end: 20170522
  18. SPIRONOL [Concomitant]
     Active Substance: SPIRONOLACTONE
     Dosage: 25 MG, UNK
     Route: 048
     Dates: start: 20140521
  19. CLEXANE [Concomitant]
     Active Substance: ENOXAPARIN SODIUM
     Dosage: 40 UNK, UNK
     Route: 058
     Dates: start: 20141218, end: 20170407
  20. MELPHALAN. [Concomitant]
     Active Substance: MELPHALAN
     Dosage: UNK
     Dates: start: 20161231, end: 20170522
  21. THALIDOMIDE [Concomitant]
     Active Substance: THALIDOMIDE
     Dosage: UNK
     Dates: start: 20161231, end: 20170522
  22. LACTULOSUM [Concomitant]
     Dosage: 1 UNK, UNK
     Route: 048
     Dates: start: 20140516
  23. HITAXA [Concomitant]
     Dosage: 5 MG, UNK
     Route: 048
     Dates: start: 20140522
  24. DENOSUMAB [Suspect]
     Active Substance: DENOSUMAB
     Indication: PLASMA CELL MYELOMA
     Dosage: 1.7 ML, UNK
     Route: 065
     Dates: start: 20170130
  25. PREDNISONE. [Concomitant]
     Active Substance: PREDNISONE
     Dosage: UNK
     Dates: start: 20161231, end: 20170522
  26. HEVIRAN [Concomitant]
     Active Substance: ACYCLOVIR
     Dosage: 400 MG, UNK
     Route: 048
     Dates: start: 20140422, end: 20170522
  27. DOXYCYCLINUM [Concomitant]
     Dosage: 100 MG, UNK
     Route: 048
     Dates: start: 20161230, end: 20170109

REACTIONS (1)
  - Osteonecrosis of jaw [Not Recovered/Not Resolved]

NARRATIVE: CASE EVENT DATE: 20170210
